FAERS Safety Report 12177413 (Version 1)
Quarter: 2016Q1

REPORT INFORMATION
  Report Type: Spontaneous
  Country: DE (occurrence: DE)
  Receive Date: 20160314
  Receipt Date: 20160314
  Transmission Date: 20160526
  Serious: Yes (Other)
  Sender: FDA-Public Use
  Company Number: DE-PFIZER INC-2016144225

PATIENT
  Age: 27 Year
  Sex: Female

DRUGS (3)
  1. CYTOTEC [Suspect]
     Active Substance: MISOPROSTOL
     Indication: ABORTION MISSED
     Dosage: 200 UG, 2X/DAY (200 UG AT 07:00 PM AND 200 UG AT 08:00 PM)
     Route: 048
     Dates: start: 20150122, end: 20150122
  2. MIFEGYNE [Suspect]
     Active Substance: MIFEPRISTONE
     Indication: ABORTION MISSED
     Dosage: 600 MG, UNK (TOTAL)
     Route: 048
     Dates: start: 20150121, end: 20150121
  3. CYTOTEC [Suspect]
     Active Substance: MISOPROSTOL
     Dosage: 200 UG, 2X/DAY (200 UG AT 02:00 PM AND 200 UG AT 03:00 PM)
     Dates: start: 20150123, end: 20150123

REACTIONS (2)
  - Product use issue [Unknown]
  - Induced abortion failed [Recovered/Resolved]

NARRATIVE: CASE EVENT DATE: 20150123
